FAERS Safety Report 6454005-X (Version None)
Quarter: 2009Q4

REPORT INFORMATION
  Report Type: 
  Country: None (occurrence: None)
  Receive Date: 20091124
  Receipt Date: 20091118
  Transmission Date: 20100525
  Serious: Yes (Hospitalization)
  Sender: FDA-Public Use
  Company Number: A0744048A

PATIENT
  Age: 42 Year
  Sex: Male
  Weight: 111.4 kg

DRUGS (13)
  1. AVANDIA [Suspect]
     Indication: DIABETES MELLITUS
     Dosage: 4MG PER DAY
     Route: 048
     Dates: start: 20030511, end: 20070201
  2. ZESTRIL [Concomitant]
  3. ALBUTEROL [Concomitant]
  4. FLONASE [Concomitant]
  5. PROTONIX [Concomitant]
  6. GLIPIZIDE [Concomitant]
  7. INSULIN [Concomitant]
  8. ADVAIR DISKUS 100/50 [Concomitant]
  9. LIPITOR [Concomitant]
  10. GLUCOPHAGE [Concomitant]
  11. CARAFATE [Concomitant]
  12. NAPROSYN [Concomitant]
  13. PERCOCET [Concomitant]

REACTIONS (6)
  - CARDIOVASCULAR DISORDER [None]
  - CEREBROVASCULAR ACCIDENT [None]
  - CHEST PAIN [None]
  - DYSPNOEA [None]
  - GAIT DISTURBANCE [None]
  - MYOCARDIAL INFARCTION [None]
